FAERS Safety Report 7382802-5 (Version None)
Quarter: 2011Q1

REPORT INFORMATION
  Report Type: 
  Country: None (occurrence: None)
  Receive Date: 20110330
  Receipt Date: 20110321
  Transmission Date: 20110831
  Serious: No
  Sender: FDA-Public Use
  Company Number: US-BIOGENIDEC-2011BI010352

PATIENT
  Age: 57 Year
  Sex: Female

DRUGS (4)
  1. AVONEX [Suspect]
     Indication: MULTIPLE SCLEROSIS
     Route: 030
     Dates: start: 20110308
  2. HYDROXYCLOROQUINE [Concomitant]
     Indication: FATIGUE
  3. AVONEX [Suspect]
     Route: 030
     Dates: end: 20101129
  4. AVONEX [Suspect]
     Route: 030
     Dates: start: 19990905

REACTIONS (1)
  - SYSTEMIC LUPUS ERYTHEMATOSUS [None]
